FAERS Safety Report 10670812 (Version 1)
Quarter: 2014Q4

REPORT INFORMATION
  Report Type: Spontaneous
  Country: LB (occurrence: None)
  Receive Date: 20141219
  Receipt Date: 20141219
  Transmission Date: 20150529
  Serious: Yes (Life-Threatening, Hospitalization)
  Sender: FDA-Public Use
  Company Number: 1520869

PATIENT
  Age: 76 Year
  Sex: Male

DRUGS (2)
  1. VANCOMYCIN [Suspect]
     Active Substance: VANCOMYCIN
     Indication: PNEUMONIA
  2. PIPERACILLIN/TAZOBACTAM (UNSPECIFIED MAH) [Concomitant]
     Indication: PNEUMONIA

REACTIONS (1)
  - Linear IgA disease [None]
